FAERS Safety Report 8340310-9 (Version None)
Quarter: 2012Q2

REPORT INFORMATION
  Report Type: 
  Country: None (occurrence: None)
  Receive Date: 20120507
  Receipt Date: 20120507
  Transmission Date: 20120825
  Serious: No
  Sender: FDA-Public Use
  Company Number: None

PATIENT
  Age: 33 Year
  Sex: Female
  Weight: 68.946 kg

DRUGS (1)
  1. VENOFER [Suspect]
     Indication: IRON DEFICIENCY ANAEMIA
     Dosage: |DOSAGETEXT: 200.0 MG||STRENGTH: 100MG||FREQ: M, FRI X 5 DOSES||ROUTE: INTRAVENOUS (NOT OTHERWISE SP
     Route: 042
     Dates: start: 20120413, end: 20120427

REACTIONS (2)
  - BURNING SENSATION [None]
  - DYSPNOEA [None]
